FAERS Safety Report 21319473 (Version 1)
Quarter: 2022Q3

REPORT INFORMATION
  Report Type: Spontaneous
  Country: US (occurrence: US)
  Receive Date: 20220911
  Receipt Date: 20220911
  Transmission Date: 20221027
  Serious: No
  Sender: FDA-Public Use
  Company Number: US-SA-SAC20220905000283

PATIENT
  Age: 67 Year
  Sex: Female
  Weight: 73.9 kg

DRUGS (2)
  1. DUPIXENT [Suspect]
     Active Substance: DUPILUMAB
     Dosage: 600 MG ON DAY 1, 1X
     Route: 058
     Dates: start: 20220824, end: 20220824
  2. DUPIXENT [Suspect]
     Active Substance: DUPILUMAB
     Dosage: 300 MG (1 PEN) EVERY 2 WEEKS
     Route: 058

REACTIONS (1)
  - Oral herpes [Unknown]
